FAERS Safety Report 16417154 (Version 2)
Quarter: 2019Q4

REPORT INFORMATION
  Report Type: Spontaneous
  Country: JP (occurrence: JP)
  Receive Date: 20190611
  Receipt Date: 20191227
  Transmission Date: 20200122
  Serious: Yes (Hospitalization)
  Sender: FDA-Public Use
  Company Number: PHJP2019JP006099

PATIENT
  Age: 65 Year
  Sex: Male

DRUGS (1)
  1. VOTRIENT [Suspect]
     Active Substance: PAZOPANIB HYDROCHLORIDE
     Indication: RENAL CELL CARCINOMA
     Dosage: 400 MG, QD
     Route: 048
     Dates: start: 20190508, end: 20190522

REACTIONS (7)
  - Disseminated intravascular coagulation [Unknown]
  - Dehydration [Recovering/Resolving]
  - Nephritis [Unknown]
  - Acute kidney injury [Not Recovered/Not Resolved]
  - Anuria [Recovering/Resolving]
  - Diarrhoea [Recovered/Resolved]
  - Haemophagocytic lymphohistiocytosis [Unknown]

NARRATIVE: CASE EVENT DATE: 20190521
